FAERS Safety Report 5781036-5 (Version None)
Quarter: 2008Q2

REPORT INFORMATION
  Report Type: 
  Country: None (occurrence: None)
  Receive Date: 20080620
  Receipt Date: 20080610
  Transmission Date: 20081010
  Serious: Yes (Other)
  Sender: FDA-Public Use
  Company Number: GR-PFIZER INC-2008049473

PATIENT
  Age: 72 Year
  Sex: Female

DRUGS (1)
  1. SUTENT [Suspect]
     Indication: RENAL CELL CARCINOMA

REACTIONS (1)
  - POLYNEUROPATHY [None]
